FAERS Safety Report 9799991 (Version 2)
Quarter: 2015Q3

REPORT INFORMATION
  Report Type: Spontaneous
  Country: US (occurrence: US)
  Receive Date: 20140106
  Receipt Date: 20150806
  Transmission Date: 20151125
  Serious: No
  Sender: FDA-Public Use
  Company Number: US-GILEAD-2010-0030492

PATIENT
  Age: 70 Year
  Sex: Female
  Weight: 83.01 kg

DRUGS (11)
  1. LETAIRIS [Suspect]
     Active Substance: AMBRISENTAN
     Indication: PULMONARY ARTERIAL HYPERTENSION
     Route: 048
     Dates: start: 20100628
  2. CALTRATE WITH D [Concomitant]
  3. ATACAND [Concomitant]
     Active Substance: CANDESARTAN CILEXETIL
  4. NEXIUM [Concomitant]
     Active Substance: ESOMEPRAZOLE MAGNESIUM
  5. FOLIC ACID. [Concomitant]
     Active Substance: FOLIC ACID
  6. SINGULAIR [Concomitant]
     Active Substance: MONTELUKAST SODIUM
  7. ALBUTEROL. [Concomitant]
     Active Substance: ALBUTEROL
  8. TYLENOL [Concomitant]
     Active Substance: ACETAMINOPHEN
  9. EVISTA [Concomitant]
     Active Substance: RALOXIFENE HYDROCHLORIDE
  10. ATORVASTATIN CALCIUM/AMLODIPINE BESILATE [Concomitant]
  11. VANOS [Concomitant]
     Active Substance: FLUOCINONIDE

REACTIONS (1)
  - Paraesthesia [Unknown]
